FAERS Safety Report 6891757-9 (Version None)
Quarter: 2010Q3

REPORT INFORMATION
  Report Type: 
  Country: None (occurrence: None)
  Receive Date: 20100731
  Receipt Date: 20071003
  Transmission Date: 20110219
  Serious: No
  Sender: FDA-Public Use
  Company Number: US-PFIZER INC-2007070482

PATIENT
  Age: 52 Year
  Sex: Male
  Weight: 78 kg

DRUGS (23)
  1. DEPO-MEDROL [Suspect]
     Indication: DYSPNOEA
     Route: 030
     Dates: start: 20070822, end: 20070822
  2. DEPO-MEDROL [Suspect]
     Indication: ASTHMA
  3. DEPO-MEDROL [Suspect]
     Indication: CHRONIC OBSTRUCTIVE PULMONARY DISEASE
  4. PAXIL [Concomitant]
     Route: 048
  5. OTHER HYPNOTICS AND SEDATIVES [Concomitant]
     Route: 048
  6. PEPCID [Concomitant]
  7. LASIX [Concomitant]
  8. QUESTRAN [Concomitant]
  9. COREG [Concomitant]
  10. ACETYLSALICYLIC ACID SRT [Concomitant]
  11. ACETAMINOPHEN [Concomitant]
  12. NEURONTIN [Concomitant]
  13. LORTAB [Concomitant]
  14. PRINIVIL [Concomitant]
  15. MORPHINE [Concomitant]
     Route: 042
  16. NITRO-BID [Concomitant]
  17. PROTONIX [Concomitant]
  18. POTASSIUM [Concomitant]
  19. ADVAIR DISKUS 100/50 [Concomitant]
  20. DETROL LA [Concomitant]
  21. MAALOX [Concomitant]
  22. MILK OF MAGNESIA TAB [Concomitant]
  23. ALL OTHER THERAPEUTIC PRODUCTS [Concomitant]

REACTIONS (3)
  - INCORRECT ROUTE OF DRUG ADMINISTRATION [None]
  - INJECTION SITE ERYTHEMA [None]
  - INJECTION SITE WARMTH [None]
